FAERS Safety Report 7051663-6 (Version None)
Quarter: 2010Q4

REPORT INFORMATION
  Report Type: 
  Country: None (occurrence: None)
  Receive Date: 20101019
  Receipt Date: 20101011
  Transmission Date: 20110411
  Serious: Yes (Other)
  Sender: FDA-Public Use
  Company Number: RU-ROCHE-732151

PATIENT
  Sex: Male

DRUGS (2)
  1. BONIVA [Suspect]
     Indication: OSTEOPOROSIS
     Route: 048
     Dates: start: 20100322, end: 20100922
  2. FLUCOSTAT [Concomitant]
     Indication: CANDIDIASIS
     Route: 048
     Dates: start: 20100101, end: 20100101

REACTIONS (1)
  - PANCREATITIS [None]
